FAERS Safety Report 7151516-9 (Version None)
Quarter: 2010Q4

REPORT INFORMATION
  Report Type: 
  Country: None (occurrence: None)
  Receive Date: 20101210
  Receipt Date: 20101130
  Transmission Date: 20110411
  Serious: Yes (Life-Threatening, Hospitalization)
  Sender: FDA-Public Use
  Company Number: IT-GENENTECH-309745

PATIENT
  Sex: Female
  Weight: 100 kg

DRUGS (5)
  1. RITUXIMAB [Suspect]
     Indication: RHEUMATOID ARTHRITIS
     Dosage: 2 G, X2
     Route: 042
     Dates: start: 20090206, end: 20100531
  2. COUMADIN [Concomitant]
     Indication: ATRIAL FIBRILLATION
     Dosage: UNK
     Route: 048
     Dates: end: 20100721
  3. TRIATEC [Concomitant]
     Indication: HYPERTENSION
     Dosage: UNK
     Route: 048
  4. FERLIXIT [Concomitant]
     Indication: ANAEMIA
     Dosage: UNK
     Route: 048
     Dates: end: 20090721
  5. IDROXICLOROCHINA [Concomitant]
     Indication: RHEUMATOID ARTHRITIS
     Dosage: INDICATION: AR
     Route: 048
     Dates: end: 20100721

REACTIONS (8)
  - ASTHENIA [None]
  - EAR PAIN [None]
  - ENCEPHALITIS [None]
  - NAUSEA [None]
  - PNEUMONIA PNEUMOCOCCAL [None]
  - PYREXIA [None]
  - SEPTIC SHOCK [None]
  - SHOCK HAEMORRHAGIC [None]
